FAERS Safety Report 17637615 (Version 1)
Quarter: 2020Q2

REPORT INFORMATION
  Report Type: Spontaneous
  Country: US (occurrence: US)
  Receive Date: 20200407
  Receipt Date: 20200407
  Transmission Date: 20200713
  Serious: No
  Sender: FDA-Public Use
  Company Number: US-AUROBINDO-AUR-APL-2020-007438

PATIENT
  Age: 43 Year
  Sex: Female
  Weight: 81.63 kg

DRUGS (1)
  1. DEXTROMETHORPHAN HYDROBROMIDE AND GUAIFENESIN [Suspect]
     Active Substance: DEXTROMETHORPHAN HYDROBROMIDE\GUAIFENESIN
     Indication: COUGH
     Dosage: ONE TABLET ON FIRST DAY, TWO TABLETS IN MORNING AND EVENING ON SECOND AND THIRD DAYS
     Route: 065
     Dates: start: 20200128, end: 20200130

REACTIONS (6)
  - Drug ineffective [Unknown]
  - Extra dose administered [Unknown]
  - Nasal congestion [Recovered/Resolved]
  - Bronchitis [Recovered/Resolved]
  - Dry mouth [Recovered/Resolved]
  - Cough [Recovered/Resolved]

NARRATIVE: CASE EVENT DATE: 20200128
